FAERS Safety Report 6574676-7 (Version None)
Quarter: 2010Q1

REPORT INFORMATION
  Report Type: 
  Country: None (occurrence: None)
  Receive Date: 20100209
  Receipt Date: 20100204
  Transmission Date: 20100710
  Serious: Yes (Death)
  Sender: FDA-Public Use
  Company Number: PHHY2010JP06366

PATIENT
  Sex: Male

DRUGS (4)
  1. NEORAL [Suspect]
     Indication: PROPHYLAXIS AGAINST TRANSPLANT REJECTION
     Dosage: 7 MG/KG DAILY
     Route: 048
     Dates: start: 20100112
  2. SIMULECT [Suspect]
     Indication: PROPHYLAXIS AGAINST TRANSPLANT REJECTION
     Route: 042
  3. CELLCEPT [Concomitant]
     Indication: PROPHYLAXIS AGAINST TRANSPLANT REJECTION
     Dosage: 1500 MG, UNK
     Route: 048
     Dates: start: 20100112, end: 20100203
  4. DRUG THERAPY NOS [Concomitant]
     Indication: PROPHYLAXIS AGAINST TRANSPLANT REJECTION
     Dosage: UNK
     Dates: start: 20100112, end: 20100203

REACTIONS (2)
  - DEATH [None]
  - HYPOAESTHESIA [None]
